FAERS Safety Report 22642529 (Version 10)
Quarter: 2025Q2

REPORT INFORMATION
  Report Type: Report from Study
  Country: CA (occurrence: CA)
  Receive Date: 20230627
  Receipt Date: 20250515
  Transmission Date: 20250716
  Serious: Yes (Other)
  Sender: CELLTRION
  Company Number: CA-CELLTRION INC.-2022CA019793

PATIENT

DRUGS (8)
  1. ADALIMUMAB-AATY [Suspect]
     Active Substance: ADALIMUMAB-AATY
     Indication: Hidradenitis
     Route: 058
     Dates: start: 20221012
  2. ADALIMUMAB-AATY [Suspect]
     Active Substance: ADALIMUMAB-AATY
     Indication: Ankylosing spondylitis
     Dosage: 40 MG SC Q WEEKLY/40.0 MILLIGRAM, 1 EVERY 1 WEEK
     Route: 058
     Dates: start: 20221012
  3. ADALIMUMAB-AATY [Suspect]
     Active Substance: ADALIMUMAB-AATY
     Dosage: 80 MG, 1/WEEK / 80.0 MILLIGRAM, 1 EVERY 1 WEEK
     Route: 058
     Dates: start: 20221012
  4. ADALIMUMAB-AATY [Suspect]
     Active Substance: ADALIMUMAB-AATY
     Dosage: 80 MILLIGRAM, WEEKLY / 80.0 MILLIGRAM, 1 EVERY 1 WEEK
     Route: 058
     Dates: start: 20221028
  5. ADALIMUMAB-AATY [Suspect]
     Active Substance: ADALIMUMAB-AATY
     Dosage: 40MG, SC Q 2 WEEKS/40.0 MILLIGRAM, 1 EVERY 2 WEEKS
     Route: 058
     Dates: start: 20221111
  6. ADALIMUMAB-AATY [Suspect]
     Active Substance: ADALIMUMAB-AATY
     Dosage: 40 MG X2 = 80 MG, WEEKLY/80 MILLIGRAM, WEEKLY/80.0 MILLIGRAM, 1 EVERY 1 WEEK
     Route: 058
     Dates: start: 20221121
  7. ADALIMUMAB-AATY [Suspect]
     Active Substance: ADALIMUMAB-AATY
     Dosage: 40MG, SC Q 2 WEEKS /40.0 MILLIGRAM, 1 EVERY 2 WEEKS
     Route: 058
     Dates: start: 20230212
  8. ADALIMUMAB-AATY [Suspect]
     Active Substance: ADALIMUMAB-AATY
     Dosage: 80 MG, 1/WEEK / 80.0 MILLIGRAM, 1 EVERY 1 WEEK
     Route: 058
     Dates: start: 20230526

REACTIONS (10)
  - Ankylosing spondylitis [Not Recovered/Not Resolved]
  - Abdominal pain upper [Not Recovered/Not Resolved]
  - Fatigue [Not Recovered/Not Resolved]
  - Product dose omission in error [Not Recovered/Not Resolved]
  - Product distribution issue [Not Recovered/Not Resolved]
  - Product dispensing issue [Not Recovered/Not Resolved]
  - Product dose omission issue [Not Recovered/Not Resolved]
  - Product prescribing issue [Not Recovered/Not Resolved]
  - Product dose omission issue [Not Recovered/Not Resolved]
  - Intentional product use issue [Not Recovered/Not Resolved]
